FAERS Safety Report 7592103-8 (Version None)
Quarter: 2011Q2

REPORT INFORMATION
  Report Type: 
  Country: None (occurrence: None)
  Receive Date: 20110628
  Receipt Date: 20110517
  Transmission Date: 20111010
  Serious: Yes (Death, Hospitalization)
  Sender: FDA-Public Use
  Company Number: WAES1104USA03005

PATIENT
  Age: 73 Year
  Sex: Female
  Weight: 93.8946 kg

DRUGS (10)
  1. CAP VORINOSTAT 100 MG [Suspect]
     Indication: COLON CANCER METASTATIC
     Dosage: 800MG/DAILY/PO
     Route: 048
     Dates: start: 20100913, end: 20110406
  2. FLUOROURACIL [Suspect]
     Indication: COLON CANCER METASTATIC
     Dosage: 1800 MG/M[2]/Q2W/IV
     Route: 042
     Dates: start: 20100915, end: 20110407
  3. COLACE [Concomitant]
  4. POTASSIUM CHLORIDE [Concomitant]
  5. TRIAMTEREN COMP [Concomitant]
  6. CITRACAL PETITES [Concomitant]
  7. COMPAZINE [Concomitant]
  8. LOSARTAN POTASSIUM [Concomitant]
  9. OXYGEN [Concomitant]
  10. LEUCOVORIN CALCIUM [Suspect]
     Indication: COLON CANCER METASTATIC
     Dosage: UNK/ UNK/ IV
     Route: 042
     Dates: end: 20110405

REACTIONS (9)
  - PNEUMONITIS [None]
  - CARBON DIOXIDE INCREASED [None]
  - BLOOD CHLORIDE DECREASED [None]
  - BLOOD UREA INCREASED [None]
  - RESPIRATORY FAILURE [None]
  - LUNG INFILTRATION [None]
  - MONOCYTE PERCENTAGE INCREASED [None]
  - EOSINOPHILIA [None]
  - BLOOD LACTATE DEHYDROGENASE INCREASED [None]
